FAERS Safety Report 7954671-3 (Version None)
Quarter: 2011Q4

REPORT INFORMATION
  Report Type: 
  Country: None (occurrence: None)
  Receive Date: 20111202
  Receipt Date: 20111201
  Transmission Date: 20120403
  Serious: Yes (Death, Other)
  Sender: FDA-Public Use
  Company Number: PHHY2011MY103585

PATIENT
  Sex: Female

DRUGS (1)
  1. TASIGNA [Suspect]
     Dates: start: 20110303, end: 20110914

REACTIONS (3)
  - ACUTE MYELOID LEUKAEMIA [None]
  - DEATH [None]
  - BRONCHOPULMONARY ASPERGILLOSIS [None]
